FAERS Safety Report 18370765 (Version 1)
Quarter: 2020Q4

REPORT INFORMATION
  Report Type: Spontaneous
  Country: DE (occurrence: DE)
  Receive Date: 20201012
  Receipt Date: 20201012
  Transmission Date: 20210114
  Serious: Yes (Hospitalization)
  Sender: FDA-Public Use
  Company Number: DE-CPL-001972

PATIENT
  Age: 94 Year
  Sex: Male
  Weight: 60 kg

DRUGS (9)
  1. EUPHRASIA OFFICINALIS [Concomitant]
     Active Substance: EUPHRASIA STRICTA
     Dosage: NA D3,AS REQUIRED, EYE DROPS
     Route: 047
  2. LACTULOSE. [Concomitant]
     Active Substance: LACTULOSE
     Dosage: 13.34 G, 1-0-0-0,  SYRUP
     Route: 048
  3. PANTOPRAZOLE [Concomitant]
     Active Substance: PANTOPRAZOLE
     Dosage: 20 MG, 0-0-1-0, TABLETS
     Route: 048
  4. ESCITALOPRAM [Suspect]
     Active Substance: ESCITALOPRAM OXALATE
     Indication: PRODUCT USED FOR UNKNOWN INDICATION
     Dosage: 10 MG, 1-0-0-0,  TABLETS
     Route: 048
  5. LORAZEPAM. [Suspect]
     Active Substance: LORAZEPAM
     Indication: PRODUCT USED FOR UNKNOWN INDICATION
     Dosage: 0.5 MG, 1-0-0-0,  TABLETS
     Route: 048
  6. DONEPEZIL. [Suspect]
     Active Substance: DONEPEZIL
     Indication: PRODUCT USED FOR UNKNOWN INDICATION
     Dosage: 10 MG, 0-0-1-0, TABLETS
     Route: 048
  7. MELPERONE/MELPERONE HYDROCHLORIDE [Suspect]
     Active Substance: MELPERONE
     Indication: PRODUCT USED FOR UNKNOWN INDICATION
     Dosage: 50 MG, 0-0-0-1, TABLETS
     Route: 048
  8. METAMIZOLE SODIUM [Concomitant]
     Active Substance: METAMIZOLE SODIUM
     Dosage: 500 MG, AS REQUIRED, TABLETS
     Route: 048
  9. ACETYLSALICYLIC ACID [Concomitant]
     Active Substance: ASPIRIN
     Dosage: 100 MG, 1-0-0-0, TABLETS
     Route: 048

REACTIONS (3)
  - Fall [Unknown]
  - Diarrhoea [Unknown]
  - Vomiting [Unknown]

NARRATIVE: CASE EVENT DATE: 201909
